FAERS Safety Report 25833782 (Version 1)
Quarter: 2025Q3

REPORT INFORMATION
  Report Type: Spontaneous
  Country: US (occurrence: US)
  Receive Date: 20250923
  Receipt Date: 20250923
  Transmission Date: 20251021
  Serious: Yes (Other)
  Sender: ABBVIE
  Company Number: US-MLMSERVICE-20250905-PI632827-00136-1

PATIENT
  Age: 22 Year

DRUGS (2)
  1. LEXAPRO [Interacting]
     Active Substance: ESCITALOPRAM OXALATE
     Indication: Anxiety
     Route: 065
  2. HERBALS\WITHANIA SOMNIFERA ROOT [Interacting]
     Active Substance: HERBALS\WITHANIA SOMNIFERA ROOT
     Indication: Product used for unknown indication
     Route: 065

REACTIONS (3)
  - Herbal interaction [Unknown]
  - Serotonin syndrome [Unknown]
  - Drug interaction [Unknown]
